FAERS Safety Report 4419722-1 (Version None)
Quarter: 2004Q3

REPORT INFORMATION
  Report Type: 
  Country: None (occurrence: None)
  Receive Date: 20040805
  Receipt Date: 20040805
  Transmission Date: 20050211
  Serious: Yes (Death)
  Sender: FDA-Public Use
  Company Number: None

PATIENT
  Sex: Male
  Weight: 92.9874 kg

DRUGS (5)
  1. CISPLATIN [Suspect]
     Indication: TONGUE NEOPLASM MALIGNANT STAGE UNSPECIFIED
     Dosage: 200MG  Q 21 DAYS  INTRAVENOUS
     Route: 042
     Dates: start: 20040524, end: 20040706
  2. DEXAMETHASONE [Concomitant]
  3. KYTRIL [Concomitant]
  4. EMEND [Concomitant]
  5. RADIATION THERAPY [Concomitant]

REACTIONS (1)
  - SUDDEN DEATH [None]
